FAERS Safety Report 7991340-8 (Version None)
Quarter: 2011Q4

REPORT INFORMATION
  Report Type: 
  Country: None (occurrence: None)
  Receive Date: 20111219
  Receipt Date: 20111208
  Transmission Date: 20120403
  Serious: Yes (Hospitalization, Other)
  Sender: FDA-Public Use
  Company Number: US-BAYER-2011-040177

PATIENT
  Age: 17 Year
  Sex: Female
  Weight: 82 kg

DRUGS (4)
  1. YAZ [Suspect]
     Indication: POLYCYSTIC OVARIES
     Dosage: UNK
     Dates: start: 20070701, end: 20080101
  2. MOTRIN [Concomitant]
  3. METFORMIN HCL [Concomitant]
     Indication: POLYCYSTIC OVARIES
     Dosage: UNK
     Dates: start: 20070701
  4. GLUCOPHAGE [Concomitant]

REACTIONS (8)
  - CHEST PAIN [None]
  - ABDOMINAL PAIN [None]
  - PAIN [None]
  - INJURY [None]
  - CHOLELITHIASIS [None]
  - CHOLECYSTITIS CHRONIC [None]
  - ANXIETY [None]
  - EMOTIONAL DISTRESS [None]
